FAERS Safety Report 16240028 (Version 1)
Quarter: 2019Q2

REPORT INFORMATION
  Report Type: Spontaneous
  Country: US (occurrence: US)
  Receive Date: 20190425
  Receipt Date: 20190425
  Transmission Date: 20190711
  Serious: No
  Sender: FDA-Public Use
  Company Number: US-ALLERGAN-1848959US

PATIENT
  Age: 6 Year
  Sex: Female

DRUGS (2)
  1. TRIPTORELIN PAMOATE - BP [Suspect]
     Active Substance: TRIPTORELIN PAMOATE
     Dosage: 22.5 MG, SINGLE
     Route: 030
     Dates: start: 20180906, end: 20180906
  2. TRIPTORELIN PAMOATE - BP [Suspect]
     Active Substance: TRIPTORELIN PAMOATE
     Indication: PRODUCT USED FOR UNKNOWN INDICATION
     Dosage: 22.5 MG, SINGLE
     Route: 030

REACTIONS (8)
  - Pain in extremity [Recovered/Resolved]
  - Acne [Not Recovered/Not Resolved]
  - Epiphyses premature fusion [Not Recovered/Not Resolved]
  - Breast enlargement [Not Recovered/Not Resolved]
  - Mood altered [Not Recovered/Not Resolved]
  - Back pain [Not Recovered/Not Resolved]
  - Off label use [Unknown]
  - Puberty [Not Recovered/Not Resolved]

NARRATIVE: CASE EVENT DATE: 20180906
